FAERS Safety Report 6001961-X (Version None)
Quarter: 2008Q4

REPORT INFORMATION
  Report Type: 
  Country: None (occurrence: None)
  Receive Date: 20081215
  Receipt Date: 20071119
  Transmission Date: 20090506
  Serious: No
  Sender: FDA-Public Use
  Company Number: US-AMGEN-KDL253384

PATIENT
  Sex: Male

DRUGS (3)
  1. ENBREL [Suspect]
     Indication: RHEUMATOID ARTHRITIS
     Route: 058
     Dates: start: 20070725
  2. ARAVA [Concomitant]
     Route: 048
     Dates: start: 20070101
  3. METHOTREXATE [Concomitant]
     Route: 048
     Dates: start: 20070101

REACTIONS (5)
  - CHILLS [None]
  - DIARRHOEA [None]
  - FEELING HOT [None]
  - OEDEMA PERIPHERAL [None]
  - VOMITING [None]
